FAERS Safety Report 18365279 (Version 1)
Quarter: 2020Q4

REPORT INFORMATION
  Report Type: Spontaneous
  Country: US (occurrence: US)
  Receive Date: 20201009
  Receipt Date: 20201009
  Transmission Date: 20210114
  Serious: Yes (Hospitalization)
  Sender: FDA-Public Use
  Company Number: None

PATIENT
  Age: 72 Year
  Sex: Male

DRUGS (2)
  1. OXYGEN CONCENTRATOR [DEVICE] [Suspect]
     Active Substance: DEVICE
  2. TADALAFIL. [Suspect]
     Active Substance: TADALAFIL
     Indication: PULMONARY ARTERIAL HYPERTENSION
     Route: 048
     Dates: start: 20181002

REACTIONS (2)
  - Oxygen saturation decreased [None]
  - Device delivery system issue [None]

NARRATIVE: CASE EVENT DATE: 20201008
